FAERS Safety Report 5122249-5 (Version None)
Quarter: 2006Q4

REPORT INFORMATION
  Report Type: 
  Country: None (occurrence: None)
  Receive Date: 20061006
  Receipt Date: 20060912
  Transmission Date: 20070319
  Serious: Yes (Life-Threatening, Hospitalization)
  Sender: FDA-Public Use
  Company Number: JP-MERCK-0609USA03186

PATIENT
  Age: 55 Year
  Sex: Male

DRUGS (18)
  1. PEPCID [Suspect]
     Route: 042
     Dates: start: 20060824, end: 20060828
  2. ZANTAC [Concomitant]
     Route: 065
     Dates: start: 20060828
  3. ZANTAC [Concomitant]
     Route: 042
     Dates: start: 20060821, end: 20060823
  4. TIENAM [Concomitant]
     Route: 065
     Dates: start: 20060821, end: 20060903
  5. [THERAPY UNSPECIFIED] [Concomitant]
     Route: 042
     Dates: start: 20060824, end: 20060828
  6. MEDICINALPRODUCT NOT SPECIFIED BY SENDER [Concomitant]
     Route: 042
     Dates: start: 20060824, end: 20060828
  7. MEDICINALPRODUCT NOT SPECIFIED BY SENDER [Concomitant]
     Route: 048
     Dates: start: 20060825
  8. UNASYN [Concomitant]
     Route: 042
     Dates: start: 20060820, end: 20060821
  9. DALACIN S [Concomitant]
     Route: 042
  10. LACTEC G [Concomitant]
     Route: 065
     Dates: start: 20060820, end: 20060821
  11. MENAMIN [Concomitant]
     Route: 030
     Dates: start: 20060820, end: 20060820
  12. SANDOSTATIN [Concomitant]
     Route: 042
     Dates: start: 20060821, end: 20060824
  13. VEEN F [Concomitant]
     Route: 065
     Dates: start: 20060821, end: 20060828
  14. ROPION [Concomitant]
     Route: 042
     Dates: start: 20060821, end: 20060827
  15. VITAMEDIN [Concomitant]
     Route: 065
     Dates: start: 20060822, end: 20060823
  16. MEDICINALPRODUCT NOT SPECIFIED BY SENDER [Concomitant]
     Route: 065
     Dates: start: 20060822, end: 20060823
  17. AMINOFLUID [Concomitant]
     Route: 065
     Dates: start: 20060822, end: 20060823
  18. MEDICINALPRODUCT NOT SPECIFIED BY SENDER [Concomitant]
     Route: 065
     Dates: start: 20060822, end: 20060823

REACTIONS (3)
  - DEHYDRATION [None]
  - STEVENS-JOHNSON SYNDROME [None]
  - STOMATITIS [None]
